FAERS Safety Report 18504420 (Version 4)
Quarter: 2021Q2

REPORT INFORMATION
  Report Type: Report from Study
  Country: DK (occurrence: DK)
  Receive Date: 20201114
  Receipt Date: 20210416
  Transmission Date: 20210717
  Serious: Yes (Hospitalization)
  Sender: FDA-Public Use
  Company Number: DK-ROCHE-2688789

PATIENT
  Age: 66 Year
  Sex: Male
  Weight: 89.4 kg

DRUGS (22)
  1. MORPHINE [Concomitant]
     Active Substance: MORPHINE
     Indication: ARTHRALGIA
  2. FLUCONAZOL [Concomitant]
     Active Substance: FLUCONAZOLE
     Indication: MUCOSAL INFECTION
     Dates: start: 20201012, end: 20201018
  3. PEMETREXED. [Concomitant]
     Active Substance: PEMETREXED
     Dates: start: 20190311, end: 20190704
  4. ATEZOLIZUMAB. [Suspect]
     Active Substance: ATEZOLIZUMAB
     Indication: MESOTHELIOMA
     Dosage: START DATE OF MOST RECENT DOSE OF ATEZOLIZUMAB PRIOR TO AE/SAE ON 21/SEP/2020 AT 10:52 AM TO 11:56 A
     Route: 041
     Dates: start: 20200921
  5. CLOPIDOGREL [Concomitant]
     Active Substance: CLOPIDOGREL BISULFATE
     Indication: CEREBELLAR STROKE
  6. LAXOBERAL [Concomitant]
     Active Substance: SODIUM PICOSULFATE
     Indication: CONSTIPATION
  7. UNIKALK FORTE [Concomitant]
     Dates: start: 20201007
  8. CARBOPLATIN. [Concomitant]
     Active Substance: CARBOPLATIN
     Dates: start: 20191030, end: 20200605
  9. RO7122290 (FAP?4?1BBL MAB) [Suspect]
     Active Substance: INVESTIGATIONAL PRODUCT
     Indication: MESOTHELIOMA
     Dosage: START DATE OF MOST RECENT DOSE OF RO7122290  PRIOR TO AE ON 21/SEP/2020 AT 1:56 TO 3:19 PM WAS 250 M
     Route: 041
     Dates: start: 20200921
  10. UNIKALK FORTE [Concomitant]
     Dates: start: 20201004
  11. VINORELBINE [Concomitant]
     Active Substance: VINORELBINE TARTRATE
     Dates: start: 20200605, end: 20200819
  12. IBUPROFEN. [Concomitant]
     Active Substance: IBUPROFEN
     Indication: ARTHRALGIA
     Dates: start: 20201127
  13. CARBOPLATIN. [Concomitant]
     Active Substance: CARBOPLATIN
     Dates: start: 20190311, end: 20190704
  14. PANTOPRAZOLE [Concomitant]
     Active Substance: PANTOPRAZOLE
     Indication: DYSPEPSIA
     Dates: start: 20201004
  15. BUFOMIX EASYHALER [Concomitant]
     Active Substance: BUDESONIDE\FORMOTEROL FUMARATE
     Indication: ASTHMA
  16. ATORVASTATIN [Concomitant]
     Active Substance: ATORVASTATIN
     Indication: CEREBELLAR STROKE
  17. GABAPENTIN. [Concomitant]
     Active Substance: GABAPENTIN
     Indication: ARTHRALGIA
  18. IMOZOP [Concomitant]
     Active Substance: ZOPICLONE
     Indication: INSOMNIA
     Dates: start: 20201004
  19. PARACETAMOL [Concomitant]
     Active Substance: ACETAMINOPHEN
     Indication: PYREXIA
     Dates: start: 20201127
  20. PEMETREXED. [Concomitant]
     Active Substance: PEMETREXED
     Dates: start: 20191030, end: 20200605
  21. SALBUTAMOL [Concomitant]
     Active Substance: ALBUTEROL
     Indication: ASTHMA
  22. MOMETASONE [Concomitant]
     Active Substance: MOMETASONE
     Indication: HYPERSENSITIVITY

REACTIONS (2)
  - Cytokine release syndrome [Recovered/Resolved]
  - Febrile neutropenia [Recovered/Resolved]

NARRATIVE: CASE EVENT DATE: 20200928
